FAERS Safety Report 5971471-4 (Version None)
Quarter: 2008Q4

REPORT INFORMATION
  Report Type: 
  Country: None (occurrence: None)
  Receive Date: 20081201
  Receipt Date: 20081119
  Transmission Date: 20090506
  Serious: Yes (Hospitalization)
  Sender: FDA-Public Use
  Company Number: FR-BRISTOL-MYERS SQUIBB COMPANY-14368047

PATIENT
  Age: 61 Year
  Sex: Male

DRUGS (8)
  1. ERBITUX [Suspect]
     Indication: COLORECTAL CANCER METASTATIC
     Route: 042
     Dates: start: 20080610, end: 20080610
  2. FLUOROURACIL [Suspect]
     Indication: COLORECTAL CANCER METASTATIC
     Dosage: 2 DOSAGE FORM = 780MG (BOLUS),4700MG.
     Route: 042
     Dates: start: 20080610, end: 20080610
  3. CAMPTOSAR [Suspect]
     Indication: COLORECTAL CANCER METASTATIC
     Route: 042
     Dates: start: 20080610, end: 20080610
  4. LEUCOVORIN CALCIUM [Suspect]
     Indication: COLORECTAL CANCER METASTATIC
     Route: 042
     Dates: start: 20080610, end: 20080610
  5. VERAPAMIL [Concomitant]
     Dates: start: 20080522
  6. PRAVASTATIN [Concomitant]
     Dates: start: 20080522
  7. DEXTROPROPOXYPHENE HCL + APAP [Concomitant]
     Dates: start: 20080522
  8. ALLOPURINOL [Concomitant]
     Dates: start: 20080522

REACTIONS (3)
  - CONVULSION [None]
  - INFUSION RELATED REACTION [None]
  - MALIGNANT NEOPLASM PROGRESSION [None]
